FAERS Safety Report 13894412 (Version 2)
Quarter: 2017Q4

REPORT INFORMATION
  Report Type: Spontaneous
  Country: IT (occurrence: IT)
  Receive Date: 20170823
  Receipt Date: 20171106
  Transmission Date: 20180320
  Serious: Yes (Other)
  Sender: FDA-Public Use
  Company Number: IT-ROCHE-1977729

PATIENT
  Sex: Female
  Weight: 90 kg

DRUGS (4)
  1. PERJETA [Suspect]
     Active Substance: PERTUZUMAB
     Indication: BREAST CANCER STAGE IV
     Dosage: 420 MG - VIAL (GLASS) - 30 MG/ML - 1 VIAL
     Route: 042
     Dates: start: 20170501, end: 20170720
  2. PACLITAXEL. [Suspect]
     Active Substance: PACLITAXEL
     Indication: BREAST CANCER STAGE IV
     Route: 042
     Dates: start: 20170501, end: 20170720
  3. DEXAMETHASONE. [Concomitant]
     Active Substance: DEXAMETHASONE
     Route: 042
  4. HERCEPTIN [Suspect]
     Active Substance: TRASTUZUMAB
     Indication: BREAST CANCER STAGE IV
     Route: 042
     Dates: start: 20170501, end: 20170720

REACTIONS (3)
  - Eczema asteatotic [Not Recovered/Not Resolved]
  - Rash papular [Not Recovered/Not Resolved]
  - Dermatitis [Unknown]
